FAERS Safety Report 4993596-2 (Version None)
Quarter: 2006Q2

REPORT INFORMATION
  Report Type: 
  Country: None (occurrence: None)
  Receive Date: 20060504
  Receipt Date: 20060504
  Transmission Date: 20061013
  Serious: Yes (Hospitalization)
  Sender: FDA-Public Use
  Company Number: None

PATIENT
  Age: 80 Year
  Sex: Female
  Weight: 45.5 kg

DRUGS (7)
  1. ENOXAPARIN SODIUM [Suspect]
     Indication: ANTICOAGULANT THERAPY
     Dosage: 30 MG SQ BID [PAST 6 DAYS]
     Route: 058
  2. NORCO [Concomitant]
  3. MOM [Concomitant]
  4. LIPITOR [Concomitant]
  5. HYDROCHLOROTHIAZIDE [Concomitant]
  6. DIOVAN [Concomitant]
  7. MULTI-VITAMIN [Concomitant]

REACTIONS (6)
  - ANAEMIA [None]
  - CONDITION AGGRAVATED [None]
  - DIZZINESS [None]
  - ECCHYMOSIS [None]
  - PELVIC HAEMATOMA [None]
  - SWELLING [None]
